FAERS Safety Report 6919948-9 (Version None)
Quarter: 2010Q3

REPORT INFORMATION
  Report Type: 
  Country: None (occurrence: None)
  Receive Date: 20100811
  Receipt Date: 20100730
  Transmission Date: 20110219
  Serious: Yes (Hospitalization)
  Sender: FDA-Public Use
  Company Number: PHHY2010US41257

PATIENT
  Sex: Female

DRUGS (2)
  1. EXJADE [Suspect]
     Indication: MYELODYSPLASTIC SYNDROME
     Dosage: 500 MG, QD
     Route: 048
  2. EXJADE [Suspect]
     Dosage: 500 MG, QOD
     Route: 048

REACTIONS (3)
  - BLOOD DISORDER [None]
  - DIZZINESS [None]
  - FATIGUE [None]
